FAERS Safety Report 9526946 (Version 3)
Quarter: 2013Q4

REPORT INFORMATION
  Report Type: Spontaneous
  Country: DE (occurrence: DE)
  Receive Date: 20130916
  Receipt Date: 20131113
  Transmission Date: 20140711
  Serious: Yes (Life-Threatening, Other)
  Sender: FDA-Public Use
  Company Number: DE-UCBSA-095964

PATIENT
  Age: 86 Year
  Sex: Female
  Weight: 65 kg

DRUGS (5)
  1. KEPPRA [Suspect]
     Indication: EPILEPSY
     Dosage: SOLUTION: PACKAGE SIZE: 150 ML, 100 MG/ML
     Route: 048
     Dates: start: 20130709, end: 20130726
  2. KEPPRA [Suspect]
     Indication: EPILEPSY
     Dosage: SOLUTION: PACKAGE SIZE: 300 ML, 100 MG/ML
     Route: 048
     Dates: start: 20130709, end: 20130726
  3. KEPPRA [Suspect]
     Indication: EPILEPSY
     Dosage: 2X5 ML
     Dates: start: 201209
  4. MESTINON [Concomitant]
     Indication: MUSCULAR WEAKNESS
     Route: 048
     Dates: start: 20100805
  5. DEGIMERCK PICO [Concomitant]
     Indication: CARDIAC FAILURE
     Dates: start: 20110313

REACTIONS (4)
  - Convulsion [Recovered/Resolved]
  - Muscle spasms [Recovered/Resolved]
  - Respiratory arrest [Recovered/Resolved]
  - Product quality issue [Unknown]
